FAERS Safety Report 4614782-7 (Version None)
Quarter: 2005Q1

REPORT INFORMATION
  Report Type: 
  Country: None (occurrence: None)
  Receive Date: 20050322
  Receipt Date: 20050310
  Transmission Date: 20050727
  Serious: Yes (Hospitalization)
  Sender: FDA-Public Use
  Company Number: US-JNJFOC-20050302966

PATIENT

DRUGS (3)
  1. DURAGESIC-100 [Suspect]
     Route: 062
  2. FENTANYL [Suspect]
     Route: 062
  3. FENTANYL [Suspect]
     Route: 062

REACTIONS (2)
  - ADVERSE EVENT [None]
  - DRUG TOXICITY [None]
